FAERS Safety Report 13122426 (Version 1)
Quarter: 2017Q1

REPORT INFORMATION
  Report Type: Not Available
  Country: None (occurrence: US)
  Receive Date: 20170117
  Receipt Date: 20170117
  Transmission Date: 20170428
  Serious: No
  Sender: FDA-Public Use
  Company Number: US-AKORN-47049

PATIENT
  Age: 12 Year
  Sex: Male

DRUGS (1)
  1. FENTANYL CITRATE INJECTION, USP CII [Suspect]
     Active Substance: FENTANYL CITRATE

REACTIONS (1)
  - Hypersensitivity [Unknown]
